FAERS Safety Report 5104855-7 (Version None)
Quarter: 2006Q3

REPORT INFORMATION
  Report Type: 
  Country: None (occurrence: None)
  Receive Date: 20060914
  Receipt Date: 20060310
  Transmission Date: 20061208
  Serious: Yes (Death, Hospitalization)
  Sender: FDA-Public Use
  Company Number: FR-GLAXOSMITHKLINE-B0415297A

PATIENT
  Age: 51 Year
  Sex: Male

DRUGS (4)
  1. AUGMENTIN [Suspect]
     Indication: FURUNCLE
     Dosage: 1G THREE TIMES PER DAY
     Route: 048
     Dates: start: 20060101, end: 20060201
  2. PYOSTACINE [Suspect]
     Indication: FURUNCLE
     Route: 048
     Dates: start: 20060101, end: 20060201
  3. DIANTALVIC [Suspect]
     Indication: PAIN
     Route: 048
  4. IMODIUM [Concomitant]
     Route: 048

REACTIONS (5)
  - ANURIA [None]
  - DIARRHOEA [None]
  - GENERAL PHYSICAL HEALTH DETERIORATION [None]
  - HEPATITIS CHOLESTATIC [None]
  - PSEUDOMEMBRANOUS COLITIS [None]
